FAERS Safety Report 5723637-6 (Version None)
Quarter: 2008Q2

REPORT INFORMATION
  Report Type: 
  Country: None (occurrence: None)
  Receive Date: 20080429
  Receipt Date: 20080429
  Transmission Date: 20081010
  Serious: Yes (Hospitalization)
  Sender: FDA-Public Use
  Company Number: None

PATIENT
  Age: 55 Year
  Sex: Female

DRUGS (3)
  1. CITALOPRAM HYDROBROMIDE [Suspect]
     Indication: DEPRESSION
     Dosage: 20 MG DAILY ORAL
     Route: 048
     Dates: start: 20050701, end: 20051201
  2. LEVOTHYROXINE SODIUM [Concomitant]
  3. RADIOACTIVE IODINE TREATMENT [Concomitant]

REACTIONS (1)
  - ANGLE CLOSURE GLAUCOMA [None]
